FAERS Safety Report 4356876-X (Version None)
Quarter: 2004Q2

REPORT INFORMATION
  Report Type: 
  Country: None (occurrence: None)
  Receive Date: 20040512
  Receipt Date: 20040505
  Transmission Date: 20050107
  Serious: Yes (Disabling)
  Sender: FDA-Public Use
  Company Number: US-MERCK-0405USA00263

PATIENT
  Sex: Male

DRUGS (7)
  1. ASPIRIN [Concomitant]
     Route: 065
  2. ATENOLOL [Concomitant]
     Route: 065
  3. HYDRODIURIL [Concomitant]
     Route: 048
  4. PRINIVIL [Concomitant]
     Route: 048
  5. ZOCOR [Suspect]
     Indication: BLOOD CHOLESTEROL INCREASED
     Route: 048
  6. ZOCOR [Suspect]
     Route: 048
  7. ZOCOR [Suspect]
     Route: 048

REACTIONS (3)
  - ASTHENIA [None]
  - MEDICATION ERROR [None]
  - PAIN IN EXTREMITY [None]
